FAERS Safety Report 21998484 (Version 1)
Quarter: 2023Q1

REPORT INFORMATION
  Report Type: Spontaneous
  Country: CA (occurrence: CA)
  Receive Date: 20230216
  Receipt Date: 20230216
  Transmission Date: 20230418
  Serious: Yes (Other)
  Sender: FDA-Public Use
  Company Number: CA-002147023-NVSC2023CA031041

PATIENT
  Age: 53 Year
  Sex: Male

DRUGS (3)
  1. DOCETAXEL [Suspect]
     Active Substance: DOCETAXEL
     Indication: Product used for unknown indication
     Dosage: UNK
     Route: 065
  2. DEXAMETHASONE [Concomitant]
     Active Substance: DEXAMETHASONE
     Indication: Product used for unknown indication
     Dosage: UNK
     Route: 065
  3. PREDNISONE [Concomitant]
     Active Substance: PREDNISONE
     Indication: Product used for unknown indication
     Dosage: UNK
     Route: 065

REACTIONS (10)
  - Chest discomfort [Recovered/Resolved]
  - Emotional disorder [Recovered/Resolved]
  - Malaise [Recovered/Resolved]
  - Muscle spasms [Recovered/Resolved]
  - Abdominal discomfort [Recovered/Resolved]
  - Erythema [Recovered/Resolved]
  - Hypertension [Recovered/Resolved]
  - Back pain [Recovered/Resolved]
  - Abdominal pain [Recovered/Resolved]
  - Dyspnoea [Recovered/Resolved]
